FAERS Safety Report 7232592-1 (Version None)
Quarter: 2011Q1

REPORT INFORMATION
  Report Type: 
  Country: None (occurrence: None)
  Receive Date: 20110119
  Receipt Date: 20110106
  Transmission Date: 20110831
  Serious: Yes (Other)
  Sender: FDA-Public Use
  Company Number: PHFR2010GB06044

PATIENT
  Sex: Female
  Weight: 86 kg

DRUGS (4)
  1. CLOZARIL [Suspect]
     Indication: SCHIZOPHRENIA
     Dosage: 350 MG
     Route: 048
     Dates: start: 20101116, end: 20101204
  2. HYOSCINE HBR HYT [Concomitant]
     Indication: SALIVARY HYPERSECRETION
     Dosage: 600 MCG
     Route: 048
     Dates: start: 20101126, end: 20101208
  3. DULOXETIME HYDROCHLORIDE [Concomitant]
     Indication: DEPRESSIVE SYMPTOM
     Dosage: 60 MG
     Route: 048
     Dates: start: 20101001
  4. SIMVASTATIN [Concomitant]
     Indication: HYPERLIPIDAEMIA
     Dosage: 40 MG
     Route: 048
     Dates: start: 20100817

REACTIONS (10)
  - CLUMSINESS [None]
  - EYE SWELLING [None]
  - CONFUSIONAL STATE [None]
  - INFLAMMATORY MARKER INCREASED [None]
  - MEMORY IMPAIRMENT [None]
  - ATAXIA [None]
  - TACHYCARDIA [None]
  - BALANCE DISORDER [None]
  - HYPOKINESIA [None]
  - DYSPHAGIA [None]
